FAERS Safety Report 20226986 (Version 1)
Quarter: 2021Q4

REPORT INFORMATION
  Report Type: Spontaneous
  Country: US (occurrence: US)
  Receive Date: 20211224
  Receipt Date: 20211224
  Transmission Date: 20220303
  Serious: Yes (Death, Hospitalization, Other)
  Sender: FDA-Public Use
  Company Number: US-LUPIN PHARMACEUTICALS INC.-2021-25302

PATIENT
  Age: 64 Year
  Sex: Male

DRUGS (4)
  1. VANCOMYCIN [Suspect]
     Active Substance: VANCOMYCIN
     Indication: Clostridium difficile infection
     Dosage: UNK
     Route: 048
  2. METRONIDAZOLE [Suspect]
     Active Substance: METRONIDAZOLE
     Indication: Clostridium difficile infection
     Dosage: UNK
     Route: 042
  3. FIDAXOMICIN [Suspect]
     Active Substance: FIDAXOMICIN
     Indication: Clostridium difficile infection
     Dosage: UNK
     Route: 065
  4. TIGECYCLINE [Suspect]
     Active Substance: TIGECYCLINE
     Indication: Clostridium difficile infection
     Dosage: UNK
     Route: 065

REACTIONS (8)
  - Multiple organ dysfunction syndrome [Fatal]
  - Condition aggravated [Fatal]
  - Drug ineffective [Fatal]
  - Respiratory distress [Unknown]
  - Pancytopenia [Unknown]
  - Pleural effusion [Unknown]
  - Encephalopathy [Unknown]
  - Septic shock [Unknown]
